FAERS Safety Report 15631519 (Version 1)
Quarter: 2018Q4

REPORT INFORMATION
  Report Type: Spontaneous
  Country: US (occurrence: US)
  Receive Date: 20181115
  Receipt Date: 20181115
  Transmission Date: 20190205
  Serious: Yes (Disabling)
  Sender: FDA-Public Use
  Company Number: None

PATIENT
  Age: 58 Year
  Sex: Female

DRUGS (12)
  1. BOTOX [Suspect]
     Active Substance: ONABOTULINUMTOXINA
     Indication: MIGRAINE
     Dosage: OTHER FREQUENCY:EVERY 3 MONTHS;?
     Route: 030
     Dates: start: 20160601, end: 20180718
  2. NABUMATONE [Concomitant]
     Active Substance: NABUMETONE
  3. MOTRIN [Concomitant]
     Active Substance: IBUPROFEN
  4. METAPROLOL [Concomitant]
     Active Substance: METOPROLOL
  5. MULTIVITAMIN [Concomitant]
     Active Substance: VITAMINS
  6. TYLENOL [Concomitant]
     Active Substance: ACETAMINOPHEN
  7. BIOTIN [Concomitant]
     Active Substance: BIOTIN
  8. MAGNESIUM [Concomitant]
     Active Substance: MAGNESIUM
  9. REGLAN [Concomitant]
     Active Substance: METOCLOPRAMIDE HYDROCHLORIDE
  10. GABAPENTIN. [Concomitant]
     Active Substance: GABAPENTIN
  11. IMITREX [Concomitant]
     Active Substance: SUMATRIPTAN SUCCINATE
  12. HEMP OIL [Concomitant]
     Active Substance: CANNABIS SATIVA SEED OIL

REACTIONS (12)
  - Hypoaesthesia [None]
  - Skin lesion [None]
  - Skin exfoliation [None]
  - Skin hypertrophy [None]
  - Insomnia [None]
  - Sinusitis [None]
  - Dry eye [None]
  - Ventricular extrasystoles [None]
  - Condition aggravated [None]
  - Lichen planus [None]
  - Hyposmia [None]
  - Skin disorder [None]

NARRATIVE: CASE EVENT DATE: 20180201
